FAERS Safety Report 9461850 (Version 1)
Quarter: 2013Q3

REPORT INFORMATION
  Report Type: Spontaneous
  Country: US (occurrence: US)
  Receive Date: 20130816
  Receipt Date: 20130816
  Transmission Date: 20140515
  Serious: Yes (Other)
  Sender: FDA-Public Use
  Company Number: US-BAYER-2013-097262

PATIENT
  Sex: Female

DRUGS (1)
  1. MIRENA [Suspect]
     Indication: CONTRACEPTION
     Dosage: 20 MCG/24HR, CONT
     Route: 015
     Dates: start: 2009

REACTIONS (8)
  - Post procedural haemorrhage [None]
  - Renal pain [None]
  - Dyspareunia [None]
  - Pain [None]
  - Swelling [None]
  - Abdominal discomfort [None]
  - Abdominal distension [None]
  - Malaise [None]
